FAERS Safety Report 24444817 (Version 2)
Quarter: 2024Q4

REPORT INFORMATION
  Report Type: Report from Study
  Country: US (occurrence: US)
  Receive Date: 20241016
  Receipt Date: 20241017
  Transmission Date: 20250114
  Serious: No
  Sender: ROCHE
  Company Number: US-ROCHE-3028325

PATIENT
  Age: 33 Year
  Sex: Female

DRUGS (9)
  1. RITUXAN [Suspect]
     Active Substance: RITUXIMAB
     Indication: Demyelination
     Dosage: DATE OF SERVICE REPORTED ON 14/NOV/2022, 14/JUL/2022, 14/MAR/2022, 20/NOV/2023, 19/JUL/2023, 06/MAR/
     Route: 042
     Dates: start: 20220314
  2. RITUXAN [Suspect]
     Active Substance: RITUXIMAB
     Indication: Myasthenia gravis
  3. KLONOPIN [Suspect]
     Active Substance: CLONAZEPAM
     Indication: Demyelination
     Route: 065
  4. MESTINON [Concomitant]
     Active Substance: PYRIDOSTIGMINE BROMIDE
  5. DELTASONE [Concomitant]
     Active Substance: PREDNISONE
  6. PROZAC [Concomitant]
     Active Substance: FLUOXETINE HYDROCHLORIDE
  7. ERGOCALCIFEROL [Concomitant]
     Active Substance: ERGOCALCIFEROL
  8. VITAMIN D3 [Concomitant]
     Active Substance: CHOLECALCIFEROL
  9. FOSAMAX [Concomitant]
     Active Substance: ALENDRONATE SODIUM

REACTIONS (2)
  - Off label use [Unknown]
  - No adverse event [Unknown]
